FAERS Safety Report 7625579-8 (Version None)
Quarter: 2011Q3

REPORT INFORMATION
  Report Type: 
  Country: None (occurrence: None)
  Receive Date: 20110713
  Receipt Date: 20110704
  Transmission Date: 20111222
  Serious: Yes (Hospitalization)
  Sender: FDA-Public Use
  Company Number: LEO-2011-00362

PATIENT
  Age: 58 Year
  Sex: Female
  Weight: 46 kg

DRUGS (10)
  1. FLUOROURACIL [Concomitant]
  2. CISPLATIN [Concomitant]
  3. PACLITAXEL [Concomitant]
  4. METHOTREXATE [Concomitant]
  5. INNOHEP [Suspect]
     Indication: EMBOLISM VENOUS
     Dosage: 90000 IU (9000 IU, 1 IN 1 D, INTRAVENOUS, 90000 IU (9000 IU, 1 IN 1 D, INTRAVENOUS
     Route: 058
     Dates: start: 20110423
  6. INNOHEP [Suspect]
     Indication: EMBOLISM VENOUS
     Dosage: 90000 IU (9000 IU, 1 IN 1 D, INTRAVENOUS, 90000 IU (9000 IU, 1 IN 1 D, INTRAVENOUS
     Route: 058
     Dates: start: 20110407, end: 20110418
  7. CYCLOPHOSPHAMIDE [Concomitant]
  8. CALCIUM LEVOFOLINATE (CALCIUM LEVOFOLINATE) [Concomitant]
  9. DOXORUBICIN HCL [Concomitant]
  10. CARBOPLATIN [Concomitant]

REACTIONS (5)
  - LARGE INTESTINAL ULCER [None]
  - COLITIS [None]
  - RADIATION INJURY [None]
  - RECTAL ULCER HAEMORRHAGE [None]
  - PEPTIC ULCER [None]
